FAERS Safety Report 10099577 (Version 2)
Quarter: 2014Q2

REPORT INFORMATION
  Report Type: Spontaneous
  Country: BG (occurrence: BG)
  Receive Date: 20140423
  Receipt Date: 20140502
  Transmission Date: 20141212
  Serious: Yes (Death, Other)
  Sender: FDA-Public Use
  Company Number: BG-ELI_LILLY_AND_COMPANY-BG201404006338

PATIENT
  Age: 71 Year
  Sex: Male

DRUGS (3)
  1. PEMETREXED [Suspect]
     Indication: LUNG ADENOCARCINOMA
     Dosage: 500 MG/M2, CYCLICAL
     Route: 065
     Dates: start: 201103, end: 201110
  2. CISPLATIN [Concomitant]
     Indication: LUNG ADENOCARCINOMA
     Dosage: UNK
     Dates: start: 201103, end: 201108
  3. DOCETAXEL [Concomitant]
     Indication: LUNG ADENOCARCINOMA
     Dosage: 75 MG/M2, CYCLICAL
     Route: 065
     Dates: start: 201111

REACTIONS (7)
  - Death [Fatal]
  - Anaemia [Recovered/Resolved]
  - Neutropenia [Recovered/Resolved]
  - Malignant neoplasm progression [Unknown]
  - Pleural effusion [Unknown]
  - Simple partial seizures [Unknown]
  - Spinal compression fracture [Unknown]
